FAERS Safety Report 18807163 (Version 1)
Quarter: 2021Q1

REPORT INFORMATION
  Report Type: Spontaneous
  Country: US (occurrence: US)
  Receive Date: 20210128
  Receipt Date: 20210128
  Transmission Date: 20210419
  Serious: Yes (Other)
  Sender: FDA-Public Use
  Company Number: US-ENDO PHARMACEUTICALS INC.-OPGN20120015

PATIENT
  Age: 46 Year
  Sex: Male

DRUGS (1)
  1. OXYMORPHONE HYDROCHLORIDE. [Suspect]
     Active Substance: OXYMORPHONE HYDROCHLORIDE
     Indication: DRUG DIVERSION
     Dosage: 15 MG, UNKNOWN
     Route: 065

REACTIONS (1)
  - Drug diversion [Unknown]
